FAERS Safety Report 7680448-2 (Version None)
Quarter: 2011Q3

REPORT INFORMATION
  Report Type: 
  Country: None (occurrence: None)
  Receive Date: 20110812
  Receipt Date: 20110808
  Transmission Date: 20111222
  Serious: Yes (Other)
  Sender: FDA-Public Use
  Company Number: US-BAYER-201014497NA

PATIENT
  Age: 20 Year
  Sex: Female
  Weight: 82 kg

DRUGS (51)
  1. IBUPROFEN [Concomitant]
     Dosage: UNK
     Dates: start: 20091001
  2. ESTRADIOL [Concomitant]
     Indication: HOT FLUSH
     Dosage: UNK
     Dates: start: 20090101
  3. CLONAZEPAM [Concomitant]
     Indication: DEPRESSION
  4. FOLIC ACID [Concomitant]
     Dosage: UNK
     Dates: start: 20090101
  5. NAPROXEN [Concomitant]
     Dosage: UNK
     Dates: start: 20090101
  6. DOXYCYCLINE [Concomitant]
     Dosage: UNK
     Dates: start: 20090101
  7. METHERGINE [Concomitant]
     Dosage: UNK
     Dates: start: 20090101
  8. VIRAL VACCINES [Concomitant]
     Dosage: UNK
     Dates: start: 20081104
  9. YAZ [Suspect]
     Indication: ACNE
     Dosage: UNK
     Dates: start: 20090301, end: 20091101
  10. ALLEGRA-D [FEXOFENADINE HYDROCHLORIDE,PSEUDOEPHEDRINE HYDROCHLORID [Concomitant]
     Indication: MULTIPLE ALLERGIES
     Dosage: UNK
     Dates: start: 20040101
  11. MELOXICAM [Concomitant]
  12. FLUCONAZOLE [Concomitant]
     Dosage: UNK
     Dates: start: 20080101
  13. AZITHROMYCIN [Concomitant]
     Dosage: UNK
     Dates: start: 20090101
  14. DESOXIMETASONE [Concomitant]
     Dosage: UNK
     Dates: start: 20080101
  15. M-END [Concomitant]
     Dosage: UNK
     Dates: start: 20080101
  16. CODICLEAR DH [Concomitant]
     Dosage: UNK
     Dates: start: 20080101
  17. LUNESTA [Concomitant]
     Indication: ANXIETY
     Dosage: UNK
     Dates: start: 20090101
  18. SYMBYAX [Concomitant]
     Indication: ANXIETY
     Dosage: UNK
     Dates: start: 20090101
  19. PRIMACARE [Concomitant]
     Dosage: UNK
     Dates: start: 20090101
  20. SULFAMETHOXAZOLE AND TRIMETHOPRIM [Concomitant]
     Dosage: UNK
     Dates: start: 20090101
  21. PHENAZOPYRIDINE HCL TAB [Concomitant]
     Dosage: UNK
     Dates: start: 20090101
  22. NEXIUM [Concomitant]
     Indication: DYSPEPSIA
     Dosage: UNK
     Dates: start: 20090101
  23. NORETHINDRONE ACETATE [Concomitant]
     Indication: ENDOMETRIOSIS
     Dosage: UNK
     Dates: start: 20090101
  24. LUPRON [Concomitant]
     Indication: ENDOMETRIOSIS
     Dosage: UNK
     Dates: start: 20090101
  25. METRONIDAZOLE [Concomitant]
     Dosage: UNK
     Dates: start: 20080101
  26. CEFUROXIME AXETIL [Concomitant]
     Dosage: UNK
     Dates: start: 20080101
  27. LUNESTA [Concomitant]
     Indication: DEPRESSION
  28. PREMARIN [Concomitant]
     Dosage: UNK
     Dates: start: 20090101
  29. CYMBALTA [Concomitant]
     Dosage: UNK
     Dates: start: 20080101
  30. VIRAL VACCINES [Concomitant]
     Indication: PAPILLOMA VIRAL INFECTION
     Dosage: UNK
     Dates: start: 20080605
  31. VIRAL VACCINES [Concomitant]
     Dosage: UNK
     Dates: start: 20080806
  32. YAZ [Suspect]
     Indication: PREMENSTRUAL SYNDROME
  33. ELMIRON [Concomitant]
     Indication: CYSTITIS
     Dosage: UNK
     Dates: start: 20090101
  34. WELCHOL [Concomitant]
     Indication: BLOOD CHOLESTEROL INCREASED
     Dosage: UNK
     Dates: start: 20090101
  35. SYMBYAX [Concomitant]
     Indication: DEPRESSION
  36. LAMOTRIGINE [Concomitant]
     Dosage: UNK
     Dates: start: 20080101
  37. NASONEX [Concomitant]
     Dosage: UNK
     Dates: start: 20080101
  38. PROBIOTICS [Concomitant]
     Indication: ABDOMINAL PAIN
     Dosage: UNK
     Dates: start: 20100101
  39. GABAPENTIN [Concomitant]
     Indication: PAIN
     Dosage: UNK
     Dates: start: 20060101
  40. CLONAZEPAM [Concomitant]
     Indication: ANXIETY
     Dosage: UNK
     Dates: start: 20080101
  41. SERTRALINE HYDROCHLORIDE [Concomitant]
     Dosage: UNK
     Dates: start: 20090101
  42. OXYCODONE HCL AND ACETAMINOPHEN [Concomitant]
     Dosage: UNK
     Dates: start: 20090101
  43. PREDNISONE [Concomitant]
     Dosage: UNK
     Dates: start: 20080101
  44. TAMIFLU [Concomitant]
     Dosage: UNK
     Dates: start: 20080101
  45. SALSALATE [Concomitant]
     Dosage: UNK
     Dates: start: 20090101
  46. YAZ [Suspect]
     Indication: ORAL CONTRACEPTION
     Dosage: UNK UNK, UNK
     Route: 048
     Dates: start: 20080101, end: 20090113
  47. HYDROXIZINE [Concomitant]
     Dosage: UNK
     Dates: start: 20090101
  48. HYOSCYAMINE [Concomitant]
     Indication: CYSTITIS
     Dosage: UNK
     Dates: start: 20090101
  49. HYDROMORPHONE HCL [Concomitant]
     Dosage: UNK
     Dates: start: 20090101
  50. AZITHROMYCIN [Concomitant]
     Dosage: UNK
     Dates: start: 20080101
  51. SUDAL [Concomitant]
     Dosage: UNK
     Dates: start: 20080101

REACTIONS (15)
  - SUICIDAL IDEATION [None]
  - ABDOMINAL PAIN LOWER [None]
  - POST-TRAUMATIC STRESS DISORDER [None]
  - ANXIETY [None]
  - PREGNANCY ON ORAL CONTRACEPTIVE [None]
  - PROCEDURAL PAIN [None]
  - DEPRESSION [None]
  - NAUSEA [None]
  - VOMITING [None]
  - GASTRITIS [None]
  - ABDOMINAL PAIN UPPER [None]
  - CHOLECYSTITIS CHRONIC [None]
  - BILIARY DYSKINESIA [None]
  - PROCEDURAL VOMITING [None]
  - ABDOMINAL PAIN [None]
